FAERS Safety Report 4480977-9 (Version None)
Quarter: 2004Q4

REPORT INFORMATION
  Report Type: 
  Country: None (occurrence: None)
  Receive Date: 20041019
  Receipt Date: 20041014
  Transmission Date: 20050328
  Serious: Yes (Death)
  Sender: FDA-Public Use
  Company Number: 04-10-1434

PATIENT
  Age: 38 Year
  Sex: Male

DRUGS (1)
  1. CLOZAPINE [Suspect]
     Indication: SCHIZOAFFECTIVE DISORDER
     Dosage: 100-600MG QD ORAL
     Route: 048
     Dates: start: 20030801, end: 20040301

REACTIONS (3)
  - COMPLETED SUICIDE [None]
  - INJURY [None]
  - ROAD TRAFFIC ACCIDENT [None]
